FAERS Safety Report 18563925 (Version 1)
Quarter: 2020Q4

REPORT INFORMATION
  Report Type: Spontaneous
  Country: US (occurrence: US)
  Receive Date: 20201130
  Receipt Date: 20201130
  Transmission Date: 20210114
  Serious: Yes (Life-Threatening, Disabling)
  Sender: FDA-Public Use
  Company Number: None

PATIENT
  Age: 53 Year
  Sex: Male
  Weight: 76.5 kg

DRUGS (3)
  1. ACETAMINOPHEN 500MG [Concomitant]
     Active Substance: ACETAMINOPHEN
  2. HUMIRA [Suspect]
     Active Substance: ADALIMUMAB
     Indication: PSORIATIC ARTHROPATHY
     Dosage: ?          QUANTITY:1 INJECTION(S);OTHER FREQUENCY:EVERY 14 DAYS;?
     Route: 058
     Dates: start: 20180301, end: 20200718
  3. ABVD CHEMOTHERAPY [Concomitant]
     Dates: start: 20201123

REACTIONS (3)
  - Pyrexia [None]
  - Hyperhidrosis [None]
  - Hodgkin^s disease [None]

NARRATIVE: CASE EVENT DATE: 20201030
